FAERS Safety Report 8654631 (Version 2)
Quarter: 2012Q4

REPORT INFORMATION
  Report Type: 
  Country: US (occurrence: US)
  Receive Date: 20120709
  Receipt Date: 20120926
  Transmission Date: 20130627
  Serious: No
  Sender: FDA-Public Use
  Company Number: US-PFIZER INC-2012161385

PATIENT
  Age: 62 Year
  Sex: Male
  Weight: 91 kg

DRUGS (7)
  1. SUTENT [Suspect]
     Indication: PANCREATIC NEUROENDOCRINE TUMOUR METASTATIC
     Dosage: 50 mg, UNK
     Dates: start: 20111201, end: 20111228
  2. SUTENT [Suspect]
     Dosage: 37.5 mg, (25mg+12.5mg) daily
     Dates: start: 20120111
  3. SUTENT [Suspect]
  4. LOSARTAN [Concomitant]
     Indication: BLOOD PRESSURE ABNORMAL
     Dosage: 100 mg, daily
  5. TYLENOL [Concomitant]
     Indication: PAIN
     Dosage: UNK
  6. TYLENOL [Concomitant]
     Indication: SLEEP DISORDER
  7. PRILOSEC [Concomitant]
     Indication: DYSPEPSIA
     Dosage: UNK

REACTIONS (7)
  - Hearing impaired [Unknown]
  - Hair colour changes [Unknown]
  - Photosensitivity reaction [Unknown]
  - Dysgeusia [Unknown]
  - Oral pain [Unknown]
  - Diarrhoea [Unknown]
  - Gastrointestinal pain [Unknown]
